FAERS Safety Report 4409611-0 (Version None)
Quarter: 2004Q3

REPORT INFORMATION
  Report Type: 
  Country: None (occurrence: None)
  Receive Date: 20040727
  Receipt Date: 20040727
  Transmission Date: 20050211
  Serious: Yes (Hospitalization)
  Sender: FDA-Public Use
  Company Number: None

PATIENT
  Sex: Female
  Weight: 90.7194 kg

DRUGS (2)
  1. ADENOSINE [Suspect]
     Indication: CHRONIC OBSTRUCTIVE AIRWAYS DISEASE
     Dosage: 50.9 MG IV STOPPED FOR INFUSION COMPLETE
     Route: 042
     Dates: start: 20040205
  2. ADENOSINE [Suspect]
     Indication: CORONARY ARTERY ATHEROSCLEROSIS
     Dosage: 50.9 MG IV STOPPED FOR INFUSION COMPLETE
     Route: 042
     Dates: start: 20040205

REACTIONS (2)
  - CHEST DISCOMFORT [None]
  - DYSPNOEA [None]
